FAERS Safety Report 10297261 (Version 4)
Quarter: 2014Q3

REPORT INFORMATION
  Report Type: Spontaneous
  Country: DE (occurrence: DE)
  Receive Date: 20140711
  Receipt Date: 20140912
  Transmission Date: 20150326
  Serious: Yes (Hospitalization)
  Sender: FDA-Public Use
  Company Number: DE-BRISTOL-MYERS SQUIBB COMPANY-21174446

PATIENT
  Age: 8 Decade
  Sex: Female
  Weight: 70 kg

DRUGS (3)
  1. NOVALGIN [Suspect]
     Active Substance: METAMIZOLE SODIUM
  2. ORENCIA [Suspect]
     Active Substance: ABATACEPT
     Indication: RHEUMATOID ARTHRITIS
     Dosage: INTERRUPTED: MAY2014?TILL:01JUN2014
     Route: 058
     Dates: start: 201404
  3. METHOTREXATE [Suspect]
     Active Substance: METHOTREXATE
     Indication: RHEUMATOID ARTHRITIS
     Dosage: 1DF = 2.5 UNITS NOS
     Route: 058
     Dates: start: 201404

REACTIONS (2)
  - Pneumonia [Recovered/Resolved]
  - Pancytopenia [Unknown]

NARRATIVE: CASE EVENT DATE: 2014
